FAERS Safety Report 23851812 (Version 1)
Quarter: 2024Q2

REPORT INFORMATION
  Report Type: Other
  Country: US (occurrence: US)
  Receive Date: 20240514
  Receipt Date: 20240514
  Transmission Date: 20240715
  Serious: Yes (Life-Threatening, Hospitalization, Other)
  Sender: FDA-Public Use
  Company Number: US-CorePharma LLC-2156941

PATIENT
  Age: 54 Year
  Sex: Male

DRUGS (2)
  1. LISINOPRIL [Suspect]
     Active Substance: LISINOPRIL
     Indication: Hypertension
     Route: 065
  2. ALOGLIPTIN [Interacting]
     Active Substance: ALOGLIPTIN
     Route: 065

REACTIONS (2)
  - Angioedema [Unknown]
  - Drug interaction [Unknown]
